FAERS Safety Report 5149370-X (Version None)
Quarter: 2006Q4

REPORT INFORMATION
  Report Type: 
  Country: None (occurrence: None)
  Receive Date: 20061113
  Receipt Date: 20051128
  Transmission Date: 20070319
  Serious: No
  Sender: FDA-Public Use
  Company Number: 426523

PATIENT
  Age: 76 Year
  Sex: Female

DRUGS (9)
  1. COREG [Suspect]
     Indication: HYPERTENSION
     Dosage: 12.5MG TWICE PER DAY
     Route: 048
  2. HYZAAR [Concomitant]
  3. NORVASC [Concomitant]
  4. SYNTHROID [Concomitant]
  5. POTASSIUM ACETATE [Concomitant]
  6. ZOLOFT [Concomitant]
  7. VITAMINS [Concomitant]
  8. ASPIRIN [Concomitant]
  9. CRESTOR [Concomitant]

REACTIONS (1)
  - ALOPECIA [None]
